FAERS Safety Report 10419674 (Version 3)
Quarter: 2014Q3

REPORT INFORMATION
  Report Type: Spontaneous
  Country: JP (occurrence: JP)
  Receive Date: 20140829
  Receipt Date: 20140905
  Transmission Date: 20150326
  Serious: Yes (Death, Other)
  Sender: FDA-Public Use
  Company Number: JP-BAXTER-2014BAX047872

PATIENT
  Age: 64 Year
  Sex: Female

DRUGS (11)
  1. CISPLATIN. [Suspect]
     Active Substance: CISPLATIN
     Route: 065
     Dates: start: 20120416, end: 20120416
  2. CISPLATIN. [Suspect]
     Active Substance: CISPLATIN
     Route: 065
     Dates: start: 20120625, end: 20120625
  3. ADRIAMYCIN [Suspect]
     Active Substance: DOXORUBICIN HYDROCHLORIDE
     Indication: MALIGNANT PERITONEAL NEOPLASM
     Dosage: 9 COURSES
     Route: 042
     Dates: start: 20120116, end: 20121203
  4. CISPLATIN. [Suspect]
     Active Substance: CISPLATIN
     Route: 065
     Dates: start: 20120806, end: 20120806
  5. CISPLATIN. [Suspect]
     Active Substance: CISPLATIN
     Indication: MALIGNANT PERITONEAL NEOPLASM
     Dosage: 9 COURSES
     Route: 065
     Dates: start: 20120116, end: 20120116
  6. CISPLATIN. [Suspect]
     Active Substance: CISPLATIN
     Route: 065
     Dates: start: 20121001, end: 20121001
  7. CISPLATIN. [Suspect]
     Active Substance: CISPLATIN
     Route: 065
     Dates: start: 20121203, end: 20121203
  8. CISPLATIN. [Suspect]
     Active Substance: CISPLATIN
     Route: 065
     Dates: start: 20120213, end: 20120213
  9. CISPLATIN. [Suspect]
     Active Substance: CISPLATIN
     Route: 065
     Dates: start: 20120521, end: 20120521
  10. IFOSFAMIDE FOR INJECTION [Suspect]
     Active Substance: IFOSFAMIDE
     Indication: MALIGNANT PERITONEAL NEOPLASM
     Dosage: 9 COURSES
     Route: 042
     Dates: start: 20120116, end: 20121207
  11. CISPLATIN. [Suspect]
     Active Substance: CISPLATIN
     Route: 065
     Dates: start: 20120312, end: 20120312

REACTIONS (3)
  - Myelodysplastic syndrome [Fatal]
  - Cardiomyopathy [Unknown]
  - Respiratory failure [Fatal]

NARRATIVE: CASE EVENT DATE: 201301
